FAERS Safety Report 7900514-3 (Version None)
Quarter: 2011Q4

REPORT INFORMATION
  Report Type: 
  Country: None (occurrence: None)
  Receive Date: 20111108
  Receipt Date: 20111102
  Transmission Date: 20120403
  Serious: Yes (Death, Hospitalization)
  Sender: FDA-Public Use
  Company Number: CA-BRISTOL-MYERS SQUIBB COMPANY-16066441

PATIENT
  Age: 70 Year
  Sex: Male

DRUGS (1)
  1. IPILIMUMAB [Suspect]
     Indication: MALIGNANT MELANOMA
     Dosage: NO OF COURSE: 1.
     Route: 042
     Dates: start: 20110908, end: 20110908

REACTIONS (7)
  - ALVEOLITIS [None]
  - DYSPNOEA [None]
  - DIARRHOEA [None]
  - DYSPEPSIA [None]
  - FATIGUE [None]
  - DECREASED APPETITE [None]
  - TRANSAMINASES INCREASED [None]
